FAERS Safety Report 6211180-X (Version None)
Quarter: 2009Q2

REPORT INFORMATION
  Report Type: 
  Country: None (occurrence: None)
  Receive Date: 20090602
  Receipt Date: 20090528
  Transmission Date: 20091009
  Serious: Yes (Other)
  Sender: FDA-Public Use
  Company Number: BR-ROCHE-635430

PATIENT
  Sex: Female
  Weight: 89 kg

DRUGS (3)
  1. RIVOTRIL [Suspect]
     Route: 048
     Dates: start: 20081101, end: 20081101
  2. CARBAMAZEPINE [Suspect]
     Route: 065
     Dates: start: 20081101, end: 20081101
  3. HYDROCHLOROTHIAZIDE [Concomitant]
     Indication: HYPERTENSION
     Route: 048
     Dates: start: 20060101

REACTIONS (1)
  - SYNCOPE [None]
